FAERS Safety Report 12018335 (Version 1)
Quarter: 2016Q1

REPORT INFORMATION
  Report Type: Report from Study
  Country: US (occurrence: US)
  Receive Date: 20160205
  Receipt Date: 20160205
  Transmission Date: 20160526
  Serious: No
  Sender: FDA-Public Use
  Company Number: US-ABBVIE-15K-163-1458828-00

PATIENT
  Age: 62 Year
  Sex: Female

DRUGS (7)
  1. MAGNESIUM WITH VITAMIN D [Concomitant]
     Indication: VITAMIN SUPPLEMENTATION
  2. VITAMIN B12 [Concomitant]
     Active Substance: CYANOCOBALAMIN
     Indication: PRODUCT USED FOR UNKNOWN INDICATION
  3. HUMIRA [Suspect]
     Active Substance: ADALIMUMAB
     Route: 058
     Dates: start: 201508
  4. CALCIUM [Concomitant]
     Active Substance: CALCIUM
     Indication: MINERAL SUPPLEMENTATION
  5. HUMIRA [Suspect]
     Active Substance: ADALIMUMAB
     Indication: CROHN^S DISEASE
     Route: 058
     Dates: start: 2013, end: 201507
  6. MAGNESIUM WITH VITAMIN D [Concomitant]
     Indication: MINERAL SUPPLEMENTATION
  7. SERTRALINE [Concomitant]
     Active Substance: SERTRALINE HYDROCHLORIDE
     Indication: INSOMNIA

REACTIONS (7)
  - Hypotension [Recovered/Resolved]
  - Fatigue [Recovered/Resolved]
  - Stress [Unknown]
  - Dizziness [Recovered/Resolved]
  - Blood iron decreased [Not Recovered/Not Resolved]
  - Colitis [Recovering/Resolving]
  - Pallor [Recovered/Resolved]

NARRATIVE: CASE EVENT DATE: 201503
